FAERS Safety Report 9991433 (Version 1)
Quarter: 2014Q1

REPORT INFORMATION
  Report Type: Report from Study
  Country: US (occurrence: US)
  Receive Date: 20140310
  Receipt Date: 20140310
  Transmission Date: 20141002
  Serious: No
  Sender: FDA-Public Use
  Company Number: US-ABBVIE-13P-163-1134017-00

PATIENT
  Age: 62 Year
  Sex: Female
  Weight: 90.8 kg

DRUGS (13)
  1. HUMIRA [Suspect]
     Indication: RHEUMATOID ARTHRITIS
     Dates: start: 201302, end: 201303
  2. HUMIRA [Suspect]
     Dates: start: 201305
  3. METHOTREXATE [Concomitant]
     Indication: RHEUMATOID ARTHRITIS
  4. PLAQUENIL [Concomitant]
     Indication: RHEUMATOID ARTHRITIS
  5. MELOXICAM [Concomitant]
     Indication: RHEUMATOID ARTHRITIS
  6. FAMOTIDINE [Concomitant]
     Indication: GASTROOESOPHAGEAL REFLUX DISEASE
  7. UNKNOWN ALLERGY SHOT [Concomitant]
     Indication: HYPERSENSITIVITY
  8. LEUCOVORIN [Concomitant]
     Indication: MINERAL SUPPLEMENTATION
  9. SIMVASTATIN [Concomitant]
     Indication: BLOOD CHOLESTEROL INCREASED
  10. FLONASE [Concomitant]
     Indication: HYPERSENSITIVITY
  11. PREDNISONE [Concomitant]
     Indication: RHEUMATOID ARTHRITIS
  12. QVAR INHALER [Concomitant]
     Indication: HYPERSENSITIVITY
  13. PROAIR HFA [Concomitant]
     Indication: HYPERSENSITIVITY

REACTIONS (3)
  - Toothache [Recovered/Resolved]
  - Tooth disorder [Recovered/Resolved]
  - Tooth abscess [Recovered/Resolved]
